FAERS Safety Report 18305978 (Version 1)
Quarter: 2020Q3

REPORT INFORMATION
  Report Type: Spontaneous
  Country: US (occurrence: US)
  Receive Date: 20200924
  Receipt Date: 20200924
  Transmission Date: 20201103
  Serious: Yes (Hospitalization, Other)
  Sender: FDA-Public Use
  Company Number: US-ASTELLAS-2020US033113

PATIENT
  Age: 80 Year
  Sex: Male

DRUGS (1)
  1. XTANDI [Suspect]
     Active Substance: ENZALUTAMIDE
     Indication: PRODUCT USED FOR UNKNOWN INDICATION
     Route: 048
     Dates: start: 202006, end: 20200906

REACTIONS (5)
  - Intraventricular haemorrhage [Unknown]
  - Blood pressure systolic increased [Unknown]
  - Haemorrhagic stroke [Unknown]
  - Cerebrovascular accident [Unknown]
  - Complications of transplanted heart [Unknown]

NARRATIVE: CASE EVENT DATE: 202006
